FAERS Safety Report 11282358 (Version 1)
Quarter: 2015Q3

REPORT INFORMATION
  Report Type: Spontaneous
  Country: US (occurrence: US)
  Receive Date: 20150720
  Receipt Date: 20150720
  Transmission Date: 20151125
  Serious: No
  Sender: FDA-Public Use
  Company Number: US-TEVA-509001USA

PATIENT
  Age: 3 Decade
  Sex: Male

DRUGS (2)
  1. BACLOFEN. [Suspect]
     Active Substance: BACLOFEN
     Indication: MUSCLE TIGHTNESS
  2. BACLOFEN. [Suspect]
     Active Substance: BACLOFEN
     Indication: PELVIC PAIN
     Route: 065

REACTIONS (3)
  - Tremor [Recovering/Resolving]
  - Anxiety [Recovering/Resolving]
  - Muscular weakness [Recovering/Resolving]
